FAERS Safety Report 5747869-6 (Version None)
Quarter: 2008Q2

REPORT INFORMATION
  Report Type: 
  Country: None (occurrence: None)
  Receive Date: 20080523
  Receipt Date: 20080512
  Transmission Date: 20081010
  Serious: Yes (Death)
  Sender: FDA-Public Use
  Company Number: JP-MERCK-0805USA03542

PATIENT
  Age: 30 Year
  Sex: Male

DRUGS (8)
  1. PRIMAXIN [Suspect]
     Route: 042
     Dates: start: 20020401, end: 20020401
  2. [THERAPY UNSPECIFIED] [Suspect]
     Route: 065
  3. [THERAPY UNSPECIFIED] [Suspect]
     Route: 065
  4. [THERAPY UNSPECIFIED] [Suspect]
     Route: 065
  5. [THERAPY UNSPECIFIED] [Suspect]
     Route: 065
  6. [THERAPY UNSPECIFIED] [Suspect]
     Route: 065
  7. [THERAPY UNSPECIFIED] [Suspect]
     Route: 065
  8. [THERAPY UNSPECIFIED] [Suspect]
     Route: 065

REACTIONS (2)
  - PANCYTOPENIA [None]
  - SEPSIS [None]
